FAERS Safety Report 4522711-X (Version None)
Quarter: 2004Q4

REPORT INFORMATION
  Report Type: 
  Country: None (occurrence: None)
  Receive Date: 20041207
  Receipt Date: 20041119
  Transmission Date: 20050328
  Serious: Yes (Death, Life-Threatening)
  Sender: FDA-Public Use
  Company Number: FR_041105245

PATIENT
  Age: 73 Year
  Sex: Female

DRUGS (4)
  1. ZYPREXA [Suspect]
     Dosage: 20 MG/1 DAY
     Dates: start: 20041011, end: 20041014
  2. TERCIAN (CYAMEMAZINE) [Concomitant]
  3. DAONIL FAIBLE (GLIBENCLAMIDE) [Concomitant]
  4. BEFIZAL (BEZAFIBRATE) [Concomitant]

REACTIONS (1)
  - MYOCARDIAL INFARCTION [None]
